FAERS Safety Report 22159860 (Version 4)
Quarter: 2023Q2

REPORT INFORMATION
  Report Type: Report from Study
  Country: US (occurrence: US)
  Receive Date: 20230331
  Receipt Date: 20230623
  Transmission Date: 20230722
  Serious: Yes (Other)
  Sender: FDA-Public Use
  Company Number: US-002147023-NVSC2023US072850

PATIENT
  Sex: Female

DRUGS (1)
  1. TASIGNA [Suspect]
     Active Substance: NILOTINIB
     Indication: Product used for unknown indication
     Dosage: UNK
     Route: 048

REACTIONS (14)
  - Genital abscess [Unknown]
  - Vulvovaginal pruritus [Unknown]
  - Stress [Unknown]
  - Feeling abnormal [Unknown]
  - Bowel movement irregularity [Unknown]
  - Nail disorder [Unknown]
  - Laboratory test abnormal [Recovered/Resolved]
  - Nausea [Unknown]
  - Blood bilirubin increased [Unknown]
  - Haemoglobin decreased [Unknown]
  - Pruritus [Unknown]
  - Fatigue [Unknown]
  - Rash [Unknown]
  - Dry skin [Unknown]
